FAERS Safety Report 8607074-2 (Version None)
Quarter: 2012Q3

REPORT INFORMATION
  Report Type: 
  Country: None (occurrence: None)
  Receive Date: 20120821
  Receipt Date: 20120810
  Transmission Date: 20120928
  Serious: Yes (Other)
  Sender: FDA-Public Use
  Company Number: CN-BRISTOL-MYERS SQUIBB COMPANY-16864902

PATIENT
  Age: 50 Year
  Sex: Male

DRUGS (1)
  1. ERBITUX [Suspect]
     Indication: RECTAL CANCER METASTATIC
     Dosage: 8JUL12-UNK 700MG 15JUL12-5AUG12 21DYS 400MG
     Route: 042
     Dates: start: 20120708, end: 20120805

REACTIONS (2)
  - BLOOD PRESSURE INCREASED [None]
  - BLOOD TEST ABNORMAL [None]
